FAERS Safety Report 20748260 (Version 1)
Quarter: 2022Q2

REPORT INFORMATION
  Report Type: Spontaneous
  Country: BR (occurrence: BR)
  Receive Date: 20220426
  Receipt Date: 20220426
  Transmission Date: 20220721
  Serious: Yes (Other)
  Sender: FDA-Public Use
  Company Number: BR-NOVARTISPH-NVSC2022BR066117

PATIENT
  Sex: Female

DRUGS (5)
  1. VOTRIENT [Suspect]
     Active Substance: PAZOPANIB HYDROCHLORIDE
     Indication: Product used for unknown indication
     Dosage: 400 MG
     Route: 065
  2. CEPHALEXIN [Concomitant]
     Active Substance: CEPHALEXIN
     Indication: Pain
     Dosage: UNK
     Route: 065
  3. DIAZEPAM [Concomitant]
     Active Substance: DIAZEPAM
     Indication: Pain
     Dosage: UNK
     Route: 065
  4. VENLAFAXINE [Concomitant]
     Active Substance: VENLAFAXINE HYDROCHLORIDE
     Indication: Pain
     Dosage: UNK
     Route: 065
  5. DIPYRONE [Concomitant]
     Active Substance: DIPYRONE
     Indication: Pain
     Dosage: UNK
     Route: 065

REACTIONS (9)
  - Tumour necrosis [Unknown]
  - Pneumothorax [Unknown]
  - Asthenia [Unknown]
  - Weight decreased [Unknown]
  - Blood pressure increased [Unknown]
  - Chest pain [Unknown]
  - Fatigue [Unknown]
  - Infection [Unknown]
  - Burning sensation [Unknown]
